FAERS Safety Report 12430425 (Version 1)
Quarter: 2016Q2

REPORT INFORMATION
  Report Type: Spontaneous
  Country: US (occurrence: US)
  Receive Date: 20160602
  Receipt Date: 20160602
  Transmission Date: 20160815
  Serious: Yes (Other)
  Sender: FDA-Public Use
  Company Number: US-TEVA-662968USA

PATIENT
  Sex: Female

DRUGS (2)
  1. COPAXONE [Suspect]
     Active Substance: GLATIRAMER ACETATE
     Indication: MULTIPLE SCLEROSIS
     Route: 058
     Dates: start: 20130530
  2. AMPYRA [Suspect]
     Active Substance: DALFAMPRIDINE
     Dosage: UNKNOWN FORM STRENGTH

REACTIONS (2)
  - Headache [Unknown]
  - Multiple sclerosis relapse [Unknown]
